FAERS Safety Report 16482614 (Version 1)
Quarter: 2019Q2

REPORT INFORMATION
  Report Type: Report from Study
  Country: IT (occurrence: IT)
  Receive Date: 20190627
  Receipt Date: 20190627
  Transmission Date: 20190711
  Serious: Yes (Hospitalization)
  Sender: FDA-Public Use
  Company Number: IT-TEVA-2019-IT-1069259

PATIENT
  Age: 64 Year
  Sex: Female

DRUGS (3)
  1. VALDORM 15 MG CAPSULE [Suspect]
     Active Substance: FLURAZEPAM HYDROCHLORIDE
     Dosage: 45 DF
     Route: 048
     Dates: start: 20190417, end: 20190417
  2. RESILIENT 83 MG COMPRESSE A RILASCIO PROLUNGATO [Suspect]
     Active Substance: LITHIUM SULFATE
     Dosage: 10 DF
     Route: 048
     Dates: start: 20190417, end: 20190417
  3. QUETIAPINE FUMARATE. [Suspect]
     Active Substance: QUETIAPINE FUMARATE
     Dosage: 10 DF
     Route: 048
     Dates: start: 20190417, end: 20190417

REACTIONS (2)
  - Sopor [Recovered/Resolved]
  - Drug abuse [Recovered/Resolved]

NARRATIVE: CASE EVENT DATE: 20190417
